FAERS Safety Report 8529258 (Version 2)
Quarter: 2012Q4

REPORT INFORMATION
  Report Type: 
  Country: US (occurrence: US)
  Receive Date: 20120425
  Receipt Date: 20121023
  Transmission Date: 20130627
  Serious: Yes (Hospitalization)
  Sender: FDA-Public Use
  Company Number: US-BAYER-2012-039685

PATIENT
  Age: 20 Year
  Sex: Female
  Weight: 58.96 kg

DRUGS (16)
  1. YAZ [Suspect]
     Indication: ACNE
     Dosage: UNK
     Dates: start: 2006, end: 2010
  2. YAZ [Suspect]
     Indication: MENSTRUAL CYCLE MANAGEMENT
  3. MOTRIN [Concomitant]
     Indication: HEADACHE
     Dosage: UNK UNK, PRN
     Route: 048
     Dates: start: 201003
  4. TYLENOL [Concomitant]
     Indication: TOOTHACHE
     Dosage: UNK UNK, PRN
     Route: 048
     Dates: start: 201003
  5. BACTRIM DS [Concomitant]
     Indication: URINARY TRACT INFECTION
     Dosage: UNK
     Dates: start: 20100304
  6. DIAZEPAM [Concomitant]
     Dosage: UNK
     Dates: start: 20100304
  7. NSAID^S [Concomitant]
     Dosage: UNK
     Dates: start: 201003
  8. CIPROFLOXACIN [Concomitant]
     Dosage: UNK
     Dates: start: 201003
  9. AZITHROMYCIN [Concomitant]
     Dosage: UNK
     Dates: start: 201003
  10. CLINDAMYCIN HYDROCHLORIDE [Concomitant]
     Dosage: UNK
     Dates: start: 201003
  11. AMOXICILLIN [Concomitant]
     Dosage: UNK
     Dates: start: 201003
  12. VICODIN [Concomitant]
  13. TORADOL [Concomitant]
  14. LOESTRIN [Concomitant]
  15. DARVOCET-N [Concomitant]
     Dosage: 100 po q4 hr PRN
  16. PHENERGAN [Concomitant]

REACTIONS (3)
  - Biliary dyskinesia [None]
  - Injury [None]
  - Pain [None]
